FAERS Safety Report 20083030 (Version 1)
Quarter: 2021Q4

REPORT INFORMATION
  Report Type: Spontaneous
  Country: US (occurrence: US)
  Receive Date: 20211117
  Receipt Date: 20211117
  Transmission Date: 20220303
  Serious: No
  Sender: FDA-Public Use
  Company Number: US-AMGEN-USASP2021178880

PATIENT

DRUGS (2)
  1. DARBEPOETIN ALFA [Suspect]
     Active Substance: DARBEPOETIN ALFA
     Indication: Anaemia
     Dosage: UNK
     Route: 065
  2. IRON [Concomitant]
     Active Substance: IRON
     Route: 042

REACTIONS (2)
  - Adverse event [Unknown]
  - Hypertension [Unknown]
